FAERS Safety Report 7112721-0 (Version None)
Quarter: 2010Q4

REPORT INFORMATION
  Report Type: 
  Country: None (occurrence: None)
  Receive Date: 20101119
  Receipt Date: 20101109
  Transmission Date: 20110411
  Serious: Yes (Other)
  Sender: FDA-Public Use
  Company Number: PHHY2010FR72204

PATIENT
  Age: 94 Year
  Sex: Male
  Weight: 82 kg

DRUGS (2)
  1. EXELON [Suspect]
     Indication: DEMENTIA WITH LEWY BODIES
     Dosage: 4.6 MG PER 24 HOUR
     Route: 062
     Dates: start: 20100125, end: 20101014
  2. LEVOTHYROXINE SODIUM [Concomitant]
     Indication: HYPOTHYROIDISM
     Dosage: 125 MCG DAILY
     Dates: start: 20100329

REACTIONS (5)
  - ANTIBODY TEST ABNORMAL [None]
  - APPLICATION SITE HYPERSENSITIVITY [None]
  - DERMATITIS BULLOUS [None]
  - MUCOCUTANEOUS RASH [None]
  - PEMPHIGOID [None]
